FAERS Safety Report 17870323 (Version 1)
Quarter: 2020Q2

REPORT INFORMATION
  Report Type: Spontaneous
  Country: US (occurrence: US)
  Receive Date: 20200605
  Receipt Date: 20200605
  Transmission Date: 20200714
  Serious: No
  Sender: FDA-Public Use
  Company Number: None

PATIENT
  Age: 26 Year
  Sex: Female
  Weight: 45 kg

DRUGS (3)
  1. METHYLPHENIDATE ER 18MG [Suspect]
     Active Substance: METHYLPHENIDATE
     Indication: ATTENTION DEFICIT HYPERACTIVITY DISORDER
     Route: 048
     Dates: start: 20200408, end: 20200508
  2. NUVARING [Concomitant]
     Active Substance: ETHINYL ESTRADIOL\ETONOGESTREL
  3. GENERIC WELLBUTRIN [Concomitant]
     Active Substance: BUPROPION HYDROCHLORIDE

REACTIONS (11)
  - Somnolence [None]
  - Fatigue [None]
  - Overdose [None]
  - Product substitution issue [None]
  - Feeling abnormal [None]
  - Underdose [None]
  - Psychomotor hyperactivity [None]
  - Drug ineffective [None]
  - Incorrect dose administered [None]
  - Therapeutic response shortened [None]
  - Irritability [None]

NARRATIVE: CASE EVENT DATE: 20200420
